FAERS Safety Report 4727109-7 (Version None)
Quarter: 2005Q3

REPORT INFORMATION
  Report Type: 
  Country: None (occurrence: None)
  Receive Date: 20050726
  Receipt Date: 20050726
  Transmission Date: 20060218
  Serious: No
  Sender: FDA-Public Use
  Company Number: None

PATIENT
  Age: 51 Year
  Sex: Male
  Weight: 93.4 kg

DRUGS (22)
  1. HYTRIN [Suspect]
  2. ENALAPRIL MALEATE [Concomitant]
  3. VITAMIN B COMPLEX/VITAMIN C [Concomitant]
  4. FLUVASTATIN SODIUM [Concomitant]
  5. OMEPRAZOLE [Concomitant]
  6. GLIPIZIDE [Concomitant]
  7. GABAPENTIN [Concomitant]
  8. ACETAMINOPHEN [Concomitant]
  9. GEMFIBROZIL [Concomitant]
  10. ACARBOSE [Concomitant]
  11. FLUNISOLIDE [Concomitant]
  12. LORATADINE [Concomitant]
  13. METOCLOPRAMIDE HCL [Concomitant]
  14. TRAZODONE HCL [Concomitant]
  15. LORAZEPAM [Concomitant]
  16. SENNOSIDES [Concomitant]
  17. CITALOPRAM HYDROBROMIDE [Concomitant]
  18. FENTANYL [Concomitant]
  19. OXYCODONE HCL [Concomitant]
  20. COUMADIN [Concomitant]
  21. MILK OF MAGNESIA [Concomitant]
  22. ALOH/MGOH/SIMTH XTRA STRENGTH LIQ [Concomitant]

REACTIONS (2)
  - DIZZINESS [None]
  - HYPOTENSION [None]
